FAERS Safety Report 8439124-0 (Version None)
Quarter: 2012Q2

REPORT INFORMATION
  Report Type: 
  Country: None (occurrence: None)
  Receive Date: 20120615
  Receipt Date: 20120605
  Transmission Date: 20120825
  Serious: Yes (Hospitalization)
  Sender: FDA-Public Use
  Company Number: US-JNJFOC-20120303345

PATIENT
  Sex: Female
  Weight: 83.01 kg

DRUGS (10)
  1. SIMVASTATIN [Concomitant]
     Indication: BLOOD CHOLESTEROL INCREASED
     Route: 048
  2. REMICADE [Suspect]
     Indication: SPONDYLITIS
     Route: 042
     Dates: start: 20110601, end: 20111123
  3. BISOPROLOL AND HYDROCHLOROTHIAZIDE [Concomitant]
     Indication: BLOOD PRESSURE INCREASED
     Dosage: DOSE: 5 MG/6.25 MG
     Route: 048
  4. LEUCOVORIN CALCIUM [Concomitant]
     Indication: BLOOD COUNT
     Route: 048
     Dates: start: 20110101
  5. SULFASALAZINE [Concomitant]
     Indication: IRRITABLE BOWEL SYNDROME
     Route: 048
     Dates: start: 20080101, end: 20111204
  6. SULFASALAZINE [Concomitant]
     Indication: ARTHRITIS
     Route: 048
     Dates: start: 20080101, end: 20111204
  7. METHOTREXATE [Concomitant]
     Indication: ARTHRITIS
     Route: 048
     Dates: start: 20110101, end: 20111204
  8. ZOLOFT [Concomitant]
     Indication: DEPRESSION
     Route: 048
  9. PRILOSEC [Concomitant]
     Indication: GASTRIC ULCER
     Route: 048
  10. LEVOTHYROXINE SODIUM [Concomitant]
     Indication: HYPOTHYROIDISM
     Route: 065

REACTIONS (11)
  - BACK PAIN [None]
  - WEIGHT DECREASED [None]
  - PLEURISY [None]
  - SEPSIS [None]
  - PSYCHOTIC DISORDER DUE TO A GENERAL MEDICAL CONDITION [None]
  - POLYNEUROPATHY [None]
  - ARTHRALGIA [None]
  - ASTHENIA [None]
  - ANAEMIA [None]
  - PNEUMONIA [None]
  - ADENOVIRUS INFECTION [None]
